FAERS Safety Report 9543178 (Version 2)
Quarter: 2013Q3

REPORT INFORMATION
  Report Type: Spontaneous
  Country: US (occurrence: US)
  Receive Date: 20130923
  Receipt Date: 20130923
  Transmission Date: 20140515
  Serious: Yes (Death, Other)
  Sender: FDA-Public Use
  Company Number: US-NAPPMUNDI-USA-2012-0090327

PATIENT
  Age: 31 Year
  Sex: Male
  Weight: 87 kg

DRUGS (3)
  1. DILAUDID TABLET [Suspect]
     Indication: PAIN
     Dosage: 4 MG, Q3H
     Dates: start: 2010, end: 20120320
  2. XYNTHA [Concomitant]
     Indication: FACTOR VIII DEFICIENCY
     Dosage: 3000 IU, 3/WEEK
     Dates: start: 2010, end: 20120320
  3. FENTANYL                           /00174602/ [Concomitant]
     Indication: PAIN
     Dosage: 75 MCG/HR, DAILY
     Dates: start: 2010, end: 20120320

REACTIONS (2)
  - Overdose [Fatal]
  - Drug abuse [Unknown]
